FAERS Safety Report 14322246 (Version 2)
Quarter: 2018Q1

REPORT INFORMATION
  Report Type: Report from Study
  Country: JP (occurrence: JP)
  Receive Date: 20171225
  Receipt Date: 20180123
  Transmission Date: 20180509
  Serious: Yes (Death, Hospitalization)
  Sender: FDA-Public Use
  Company Number: JP-ASTRAZENECA-2017SF31768

PATIENT
  Age: 81 Year
  Sex: Male
  Weight: 65 kg

DRUGS (11)
  1. FLUITRAN [Concomitant]
     Active Substance: TRICHLORMETHIAZIDE
     Route: 048
     Dates: end: 20170717
  2. REBAMIPIDE [Concomitant]
     Active Substance: REBAMIPIDE
     Route: 048
     Dates: end: 20170717
  3. HUMALOG MIX [Concomitant]
     Active Substance: INSULIN LISPRO
     Indication: TYPE 2 DIABETES MELLITUS
     Route: 065
     Dates: end: 20170717
  4. SELECTOL [Concomitant]
     Active Substance: CELIPROLOL
     Route: 048
     Dates: end: 20170717
  5. OLMETEC [Concomitant]
     Active Substance: OLMESARTAN MEDOXOMIL
     Route: 048
     Dates: end: 20170717
  6. PROTECADIN [Concomitant]
     Active Substance: LAFUTIDINE
     Route: 048
     Dates: end: 20170717
  7. BAYASPIRIN [Concomitant]
     Active Substance: ASPIRIN
     Route: 048
     Dates: end: 20170717
  8. NORVASC [Concomitant]
     Active Substance: AMLODIPINE BESYLATE
     Route: 048
     Dates: end: 20170717
  9. GLACTIV [Concomitant]
     Active Substance: SITAGLIPTIN
     Indication: TYPE 2 DIABETES MELLITUS
     Route: 048
     Dates: end: 20170717
  10. PROMOTIN S [Concomitant]
     Route: 048
     Dates: end: 20170717
  11. FORXIGA [Suspect]
     Active Substance: DAPAGLIFLOZIN
     Indication: TYPE 2 DIABETES MELLITUS
     Route: 048
     Dates: start: 20151124, end: 20170809

REACTIONS (3)
  - Blood triglycerides increased [Recovered/Resolved]
  - Blood creatinine increased [Not Recovered/Not Resolved]
  - Colon cancer [Fatal]

NARRATIVE: CASE EVENT DATE: 20151222
